FAERS Safety Report 11395441 (Version 1)
Quarter: 2015Q3

REPORT INFORMATION
  Report Type: Spontaneous
  Country: US (occurrence: None)
  Receive Date: 20150817
  Receipt Date: 20150817
  Transmission Date: 20151125
  Serious: Yes (Other)
  Sender: FDA-Public Use
  Company Number: None

PATIENT
  Age: 26 Year
  Sex: Male
  Weight: 81.65 kg

DRUGS (3)
  1. RESTASIS [Concomitant]
     Active Substance: CYCLOSPORINE
  2. VITAMIN D2 (VEGAN) [Concomitant]
  3. ESCITALOPRAM 20 MG INTAS PHARMACEUTICALS LIMITED [Suspect]
     Active Substance: ESCITALOPRAM OXALATE
     Indication: DEPRESSION
     Route: 048
     Dates: start: 20150720, end: 20150722

REACTIONS (4)
  - Rash [None]
  - Product substitution issue [None]
  - Product formulation issue [None]
  - Dermatitis contact [None]

NARRATIVE: CASE EVENT DATE: 20150720
